FAERS Safety Report 10074414 (Version 1)
Quarter: 2014Q2

REPORT INFORMATION
  Report Type: Spontaneous
  Country: US (occurrence: US)
  Receive Date: 20140411
  Receipt Date: 20140411
  Transmission Date: 20141212
  Serious: No
  Sender: FDA-Public Use
  Company Number: US-SANOFI-AVENTIS-2013SA077188

PATIENT
  Age: 48 Year
  Sex: Male
  Weight: 90.71 kg

DRUGS (6)
  1. ALLEGRA D [Suspect]
     Indication: RHINITIS ALLERGIC
     Route: 048
     Dates: start: 20120831, end: 20120905
  2. ALLEGRA D [Suspect]
     Indication: RHINITIS ALLERGIC
     Route: 048
     Dates: start: 20130725, end: 20130725
  3. ANTIHISTAMINES [Concomitant]
     Indication: SEASONAL ALLERGY
     Dosage: OFF AND ON FOR YEARS
     Route: 065
  4. ALL OTHER THERAPEUTIC PRODUCTS [Concomitant]
     Indication: SEASONAL ALLERGY
     Dosage: OFF AND ON FOR YEARS
     Route: 065
  5. ATORVASTATIN [Concomitant]
     Indication: HYPERCHOLESTEROLAEMIA
     Route: 065
     Dates: start: 200501
  6. LOSARTAN [Concomitant]
     Indication: HYPERTENSION
     Route: 065
     Dates: start: 201207, end: 201304

REACTIONS (2)
  - Tachycardia [Recovered/Resolved]
  - Dizziness [Recovered/Resolved]
